FAERS Safety Report 6774019-X (Version None)
Quarter: 2010Q2

REPORT INFORMATION
  Report Type: 
  Country: None (occurrence: None)
  Receive Date: 20100615
  Receipt Date: 20100615
  Transmission Date: 20101027
  Serious: Yes (Other)
  Sender: FDA-Public Use
  Company Number: None

PATIENT
  Age: 57 Year
  Sex: Female
  Weight: 54.4316 kg

DRUGS (1)
  1. ACTONEL [Suspect]
     Indication: OSTEOPOROSIS
     Dosage: ONE ONCE A MONTH PO
     Route: 048
     Dates: start: 20100603, end: 20100603

REACTIONS (4)
  - BACK PAIN [None]
  - CHEST PAIN [None]
  - HYPOAESTHESIA [None]
  - MOVEMENT DISORDER [None]
